FAERS Safety Report 9375266 (Version 2)
Quarter: 2013Q3

REPORT INFORMATION
  Report Type: Spontaneous
  Country: FR (occurrence: FR)
  Receive Date: 20130628
  Receipt Date: 20130712
  Transmission Date: 20140515
  Serious: Yes (Life-Threatening, Hospitalization)
  Sender: FDA-Public Use
  Company Number: FR-TEVA-415409ISR

PATIENT
  Age: 80 Year
  Sex: Male

DRUGS (8)
  1. FUROSEMIDE TEVA 40 MG [Suspect]
     Indication: CARDIAC FAILURE
     Dosage: 120 MILLIGRAM DAILY; A FEW WEEKS
     Route: 048
  2. KARDEGIC 75 MG [Concomitant]
     Route: 048
  3. BRILIQUE 90 MG [Concomitant]
     Route: 048
  4. EZETROL 10 MG [Concomitant]
     Route: 048
  5. GLUCOPHAGE 500 MG [Concomitant]
     Dosage: 500 MILLIGRAM DAILY;
     Route: 048
  6. NOVONORM [Concomitant]
  7. DIFFUK K [Concomitant]
  8. LANTUS [Concomitant]

REACTIONS (5)
  - Cardiac failure [Recovered/Resolved]
  - Acute pulmonary oedema [Recovered/Resolved]
  - Myocardial ischaemia [Recovered/Resolved]
  - Somnolence [Recovered/Resolved]
  - Lung disorder [Recovered/Resolved]
